FAERS Safety Report 17325578 (Version 1)
Quarter: 2020Q1

REPORT INFORMATION
  Report Type: Spontaneous
  Country: US (occurrence: US)
  Receive Date: 20200127
  Receipt Date: 20200127
  Transmission Date: 20200409
  Serious: No
  Sender: FDA-Public Use
  Company Number: US-REGENERON PHARMACEUTICALS, INC.-2019-18047

PATIENT

DRUGS (2)
  1. EYLEA [Suspect]
     Active Substance: AFLIBERCEPT
     Indication: RETINAL DISORDER
     Dosage: UNK, EVERY 5 WEEKS OR EVERY 7 WEEKS, OD
     Route: 031
     Dates: start: 2007
  2. EYLEA [Suspect]
     Active Substance: AFLIBERCEPT
     Dosage: UNK, EVERY 5 WEEKS OR EVERY 7 WEEKS, FIRST DOSE TO OS
     Route: 031
     Dates: start: 2018, end: 2018

REACTIONS (3)
  - Ill-defined disorder [Unknown]
  - Retinal disorder [Unknown]
  - Blood glucose increased [Unknown]
